FAERS Safety Report 14267677 (Version 1)
Quarter: 2017Q4

REPORT INFORMATION
  Report Type: Spontaneous
  Country: US (occurrence: US)
  Receive Date: 20171211
  Receipt Date: 20171211
  Transmission Date: 20180321
  Serious: No
  Sender: FDA-Public Use
  Company Number: US-ROCHE-1903429

PATIENT
  Age: 4 Year
  Sex: Female
  Weight: 20 kg

DRUGS (5)
  1. DIAZEPAM. [Suspect]
     Active Substance: DIAZEPAM
     Indication: STATUS EPILEPTICUS
     Route: 042
  2. VALPROIC ACID. [Concomitant]
     Active Substance: VALPROIC ACID
     Route: 048
  3. VALPROIC ACID. [Concomitant]
     Active Substance: VALPROIC ACID
     Route: 050
  4. LORAZEPAM. [Concomitant]
     Active Substance: LORAZEPAM
     Route: 042
  5. LORAZEPAM. [Concomitant]
     Active Substance: LORAZEPAM
     Indication: GENERALISED TONIC-CLONIC SEIZURE
     Route: 042

REACTIONS (1)
  - Somnolence [Unknown]
